FAERS Safety Report 26056389 (Version 1)
Quarter: 2025Q4

REPORT INFORMATION
  Report Type: Report from Study
  Country: BR (occurrence: BR)
  Receive Date: 20251118
  Receipt Date: 20251118
  Transmission Date: 20260118
  Serious: Yes (Hospitalization, Other)
  Sender: JOHNSON AND JOHNSON
  Company Number: BR-JNJFOC-20251155010

PATIENT
  Age: 25 Year
  Sex: Female
  Weight: 55 kg

DRUGS (4)
  1. GOLIMUMAB [Suspect]
     Active Substance: GOLIMUMAB
     Indication: Ankylosing spondylitis
     Route: 058
     Dates: start: 20240809
  2. GOLIMUMAB [Suspect]
     Active Substance: GOLIMUMAB
  3. PROGESTERONE [Concomitant]
     Active Substance: PROGESTERONE
     Indication: Maternal therapy to enhance foetal lung maturity
  4. PROGESTERONE [Concomitant]
     Active Substance: PROGESTERONE
     Indication: Maternal therapy to enhance foetal lung maturity

REACTIONS (5)
  - Abortion threatened [Unknown]
  - Ankylosing spondylitis [Not Recovered/Not Resolved]
  - Caesarean section [Recovered/Resolved]
  - Exposure during pregnancy [Recovered/Resolved]
  - COVID-19 [Unknown]

NARRATIVE: CASE EVENT DATE: 20240101
